FAERS Safety Report 8766718 (Version 1)
Quarter: 2012Q4

REPORT INFORMATION
  Report Type: 
  Country: JP (occurrence: JP)
  Receive Date: 20120904
  Receipt Date: 20120904
  Transmission Date: 20130627
  Serious: Yes (Other)
  Sender: FDA-Public Use
  Company Number: JP-JNJFOC-20120804586

PATIENT

DRUGS (10)
  1. TOPIRAMATE [Suspect]
     Indication: CONVULSION
     Route: 048
  2. TOPIRAMATE [Suspect]
     Indication: CONVULSION
     Dosage: 100 mg per day a smaller

than recommended amount for 1 year
     Route: 048
  3. SODIUM VALPROATE [Concomitant]
     Indication: EPILEPSY
     Route: 065
  4. CARBAMAZEPINE [Concomitant]
     Indication: EPILEPSY
     Route: 065
  5. CLOBAZAM [Concomitant]
     Indication: EPILEPSY
     Route: 065
  6. CLONAZEPAM [Concomitant]
     Indication: EPILEPSY
     Route: 065
  7. ZONISAMIDE [Concomitant]
     Indication: EPILEPSY
     Route: 065
  8. PHENYTOIN [Concomitant]
     Indication: EPILEPSY
     Route: 065
  9. LAMOTRIGINE [Concomitant]
     Indication: EPILEPSY
     Route: 065
  10. LEVETIRACETAM [Concomitant]
     Indication: EPILEPSY
     Route: 065

REACTIONS (5)
  - Drug ineffective [Unknown]
  - Orthostatic hypotension [Unknown]
  - Adverse drug reaction [Unknown]
  - Headache [Unknown]
  - Dizziness [Unknown]
